FAERS Safety Report 8005814-7 (Version None)
Quarter: 2011Q4

REPORT INFORMATION
  Report Type: 
  Country: None (occurrence: None)
  Receive Date: 20111223
  Receipt Date: 20111220
  Transmission Date: 20120403
  Serious: Yes (Life-Threatening, Hospitalization, Other)
  Sender: FDA-Public Use
  Company Number: JP-PFIZER INC-2011296757

PATIENT
  Age: 63 Year
  Sex: Female
  Weight: 60 kg

DRUGS (2)
  1. SUTENT [Suspect]
     Indication: RENAL CELL CARCINOMA
     Dosage: 50 MG, 1X/DAY
     Route: 048
     Dates: start: 20111130, end: 20111204
  2. BUFFERIN [Concomitant]
     Indication: ARRHYTHMIA SUPRAVENTRICULAR
     Dosage: 81 MG, 1X/DAY
     Route: 048
     Dates: end: 20111204

REACTIONS (5)
  - HAEMOPTYSIS [None]
  - PLEURAL EFFUSION [None]
  - DYSPNOEA [None]
  - GASTROINTESTINAL HAEMORRHAGE [None]
  - PLATELET COUNT DECREASED [None]
